FAERS Safety Report 15106023 (Version 2)
Quarter: 2018Q3

REPORT INFORMATION
  Report Type: Spontaneous
  Country: US (occurrence: US)
  Receive Date: 20180704
  Receipt Date: 20180911
  Transmission Date: 20181010
  Serious: No
  Sender: FDA-Public Use
  Company Number: US-GLENMARK PHARMACEUTICALS-2018GMK032734

PATIENT

DRUGS (1)
  1. MUPIROCIN. [Suspect]
     Active Substance: MUPIROCIN
     Indication: STAPHYLOCOCCAL INFECTION
     Dosage: UNK, BID
     Route: 061
     Dates: start: 20180219, end: 20180220

REACTIONS (4)
  - Hypersensitivity [Unknown]
  - Wound secretion [Unknown]
  - Erythema [Unknown]
  - Drug ineffective for unapproved indication [Unknown]
